FAERS Safety Report 20679292 (Version 1)
Quarter: 2022Q2

REPORT INFORMATION
  Report Type: Spontaneous
  Country: US (occurrence: US)
  Receive Date: 20220406
  Receipt Date: 20220406
  Transmission Date: 20220720
  Serious: No
  Sender: FDA-Public Use
  Company Number: US-PERRIGO-21US029436

PATIENT
  Age: 79 Year
  Sex: Male
  Weight: 70.295 kg

DRUGS (2)
  1. PSEUDOEPHEDRINE HYDROCHLORIDE [Suspect]
     Active Substance: PSEUDOEPHEDRINE HYDROCHLORIDE
     Indication: Rhinorrhoea
     Dosage: 120 MG, BID
     Route: 048
     Dates: start: 20211010, end: 20211010
  2. PSEUDOEPHEDRINE HYDROCHLORIDE [Suspect]
     Active Substance: PSEUDOEPHEDRINE HYDROCHLORIDE
     Dosage: 120 MG, SINGLE
     Route: 048
     Dates: start: 20211011, end: 20211011

REACTIONS (3)
  - Gait disturbance [Not Recovered/Not Resolved]
  - Vertigo [Recovered/Resolved]
  - Drug effective for unapproved indication [Recovered/Resolved]

NARRATIVE: CASE EVENT DATE: 20211010
